FAERS Safety Report 23546055 (Version 2)
Quarter: 2024Q1

REPORT INFORMATION
  Report Type: Spontaneous
  Country: US (occurrence: US)
  Receive Date: 20240220
  Receipt Date: 20240228
  Transmission Date: 20240410
  Serious: No
  Sender: FDA-Public Use
  Company Number: US-ABBVIE-5642375

PATIENT
  Sex: Female

DRUGS (2)
  1. BOTOX [Suspect]
     Active Substance: ONABOTULINUMTOXINA
     Indication: Pain in jaw
     Dosage: TIME INTERVAL: AS NECESSARY
     Route: 065
     Dates: start: 20231101, end: 20231101
  2. BOTOX [Suspect]
     Active Substance: ONABOTULINUMTOXINA
     Indication: Pain in jaw
     Dosage: TIME INTERVAL: AS NECESSARY
     Route: 065
     Dates: start: 20190201, end: 20190201

REACTIONS (1)
  - Maternal exposure during pregnancy [Unknown]
